FAERS Safety Report 6997232-5 (Version None)
Quarter: 2010Q3

REPORT INFORMATION
  Report Type: 
  Country: None (occurrence: None)
  Receive Date: 20100918
  Receipt Date: 20090922
  Transmission Date: 20110219
  Serious: No
  Sender: FDA-Public Use
  Company Number: US-WYE-H11156309

PATIENT
  Sex: Male

DRUGS (1)
  1. EFFEXOR XR [Suspect]
     Indication: PANIC DISORDER
     Dosage: UNSPECIFIED
     Route: 048
     Dates: start: 20090701, end: 20090801

REACTIONS (8)
  - BLOOD PRESSURE INCREASED [None]
  - CLUSTER HEADACHE [None]
  - CONDITION AGGRAVATED [None]
  - DIZZINESS [None]
  - DRUG WITHDRAWAL SYNDROME [None]
  - PANIC DISORDER [None]
  - TREMOR [None]
  - UNEVALUABLE EVENT [None]
